FAERS Safety Report 6527685-8 (Version None)
Quarter: 2010Q1

REPORT INFORMATION
  Report Type: 
  Country: None (occurrence: None)
  Receive Date: 20100105
  Receipt Date: 20091124
  Transmission Date: 20100710
  Serious: Yes (Other)
  Sender: FDA-Public Use
  Company Number: DE-GENENTECH-296512

PATIENT
  Age: 10 Year
  Sex: Female
  Weight: 30 kg

DRUGS (14)
  1. XOLAIR [Suspect]
     Indication: ASTHMA
     Dosage: 300 MG, Q2W
     Route: 058
     Dates: start: 20050901
  2. XOLAIR [Suspect]
     Indication: ALLERGY TO VENOM
     Dosage: 150 MG, Q2W
     Route: 058
     Dates: start: 20070801
  3. FLUTICASONE [Concomitant]
     Indication: DRUG USE FOR UNKNOWN INDICATION
     Dosage: 125 A?G, UNK
     Dates: start: 20050901
  4. FLUTICASONE [Concomitant]
     Dosage: 125 A?G, UNK
     Dates: start: 20060901
  5. BECLOMETASONE [Concomitant]
     Indication: DRUG USE FOR UNKNOWN INDICATION
     Dosage: 50 A?G, UNK
     Dates: start: 20090901
  6. FORMOTEROL FUMARATE [Concomitant]
     Indication: DRUG USE FOR UNKNOWN INDICATION
     Dosage: UNK
     Dates: start: 20050901
  7. FORMOTEROL FUMARATE [Concomitant]
     Dosage: UNK
     Dates: start: 20060101
  8. LEVOCETIRIZINE DIHYDROCHLORIDE [Concomitant]
     Indication: DRUG USE FOR UNKNOWN INDICATION
     Dosage: UNK
     Dates: start: 20050901
  9. MONTELUKAST SODIUM [Concomitant]
     Indication: DRUG USE FOR UNKNOWN INDICATION
     Dosage: 5 MG, UNK
     Dates: start: 20050901
  10. MONTELUKAST SODIUM [Concomitant]
     Dosage: 5 MG, UNK
     Dates: start: 20060101
  11. ALBUTEROL [Concomitant]
     Indication: DRUG USE FOR UNKNOWN INDICATION
     Dosage: UNK
     Dates: start: 20050901
  12. ALBUTEROL [Concomitant]
     Dosage: UNK
     Dates: start: 20060101
  13. ALBUTEROL [Concomitant]
     Dosage: UNK
     Dates: start: 20060901
  14. ALBUTEROL [Concomitant]
     Dosage: UNK
     Dates: start: 20090901

REACTIONS (2)
  - ASTHMA [None]
  - INFLUENZA [None]
